FAERS Safety Report 4739083-8 (Version None)
Quarter: 2005Q3

REPORT INFORMATION
  Report Type: 
  Country: None (occurrence: None)
  Receive Date: 20050810
  Receipt Date: 20050412
  Transmission Date: 20060218
  Serious: Yes (Other)
  Sender: FDA-Public Use
  Company Number: US-GLAXOSMITHKLINE-A0553767A

PATIENT
  Age: 22 Year
  Sex: Male

DRUGS (4)
  1. PAXIL CR [Suspect]
     Indication: DEPRESSION
     Route: 048
  2. DEPAKOTE [Concomitant]
  3. TRAZODONE [Concomitant]
  4. CONCERTA [Concomitant]

REACTIONS (1)
  - HEPATIC ENZYME INCREASED [None]
